FAERS Safety Report 8876130 (Version 1)
Quarter: 2012Q4

REPORT INFORMATION
  Report Type: 
  Country: US (occurrence: US)
  Receive Date: 20121030
  Receipt Date: 20121030
  Transmission Date: 20130627
  Serious: Yes (Death, Hospitalization, Other)
  Sender: FDA-Public Use
  Company Number: US-MPIJNJ-2012-07343

PATIENT
  Age: 86 Year
  Sex: Female
  Weight: 51.4 kg

DRUGS (2)
  1. VELCADE [Suspect]
     Indication: ACUTE MYELOID LEUKAEMIA
     Dosage: 1.3 mg/m2, Cyclic
     Route: 058
     Dates: start: 20120820, end: 20120927
  2. DECITABINE [Suspect]
     Indication: ACUTE MYELOID LEUKAEMIA
     Dosage: 20 mg/m2, Cyclic
     Route: 042
     Dates: start: 20120820, end: 20120930

REACTIONS (7)
  - Colitis [Recovered/Resolved]
  - Acute myeloid leukaemia [Fatal]
  - Hypotension [Recovered/Resolved]
  - Diarrhoea [Recovered/Resolved]
  - Bacteraemia [Recovered/Resolved]
  - Orthostatic hypotension [Unknown]
  - Cellulitis [Recovered/Resolved]
